FAERS Safety Report 7134133-6 (Version None)
Quarter: 2010Q4

REPORT INFORMATION
  Report Type: 
  Country: None (occurrence: None)
  Receive Date: 20101203
  Receipt Date: 20101125
  Transmission Date: 20110411
  Serious: Yes (Other)
  Sender: FDA-Public Use
  Company Number: AU-JNJFOC-20100304832

PATIENT
  Sex: Female

DRUGS (21)
  1. DURAGESIC-100 [Suspect]
     Indication: ARTHRALGIA
     Route: 062
  2. DURAGESIC-100 [Suspect]
     Route: 062
  3. DURAGESIC-100 [Suspect]
     Route: 062
  4. DURAGESIC-100 [Suspect]
     Indication: NERVE COMPRESSION
     Route: 062
  5. DURAGESIC-100 [Suspect]
     Route: 062
  6. DURAGESIC-100 [Suspect]
     Route: 062
  7. DURAGESIC-100 [Suspect]
     Route: 062
  8. DURAGESIC-100 [Suspect]
     Route: 062
  9. DURAGESIC-100 [Suspect]
     Route: 062
  10. DURAGESIC-100 [Suspect]
     Indication: BACK PAIN
     Route: 062
  11. DURAGESIC-100 [Suspect]
     Route: 062
  12. DURAGESIC-100 [Suspect]
     Route: 062
  13. ASPIRIN [Suspect]
     Indication: ILL-DEFINED DISORDER
  14. AVAPRO [Concomitant]
     Indication: BLOOD PRESSURE
     Route: 065
  15. UNKNOWN MEDICATION [Concomitant]
     Indication: CONVULSION
     Route: 065
  16. FELODUR [Concomitant]
     Indication: BLOOD PRESSURE
     Route: 065
  17. CALTRATE [Concomitant]
     Route: 065
  18. PANADOL OSTEO [Concomitant]
     Route: 065
  19. FISH OIL [Concomitant]
     Route: 065
  20. MAGNESIUM [Concomitant]
     Route: 065
  21. GLUCOSAMINE [Concomitant]
     Route: 065

REACTIONS (5)
  - CARPAL TUNNEL DECOMPRESSION [None]
  - FAECES DISCOLOURED [None]
  - RASH PRURITIC [None]
  - ULCER [None]
  - WEIGHT DECREASED [None]
